FAERS Safety Report 16331572 (Version 1)
Quarter: 2019Q2

REPORT INFORMATION
  Report Type: Spontaneous
  Country: US (occurrence: US)
  Receive Date: 20190517
  Receipt Date: 20190517
  Transmission Date: 20190711
  Serious: Yes (Disabling)
  Sender: FDA-Public Use
  Company Number: None

PATIENT
  Age: 71 Year
  Sex: Male
  Weight: 89.1 kg

DRUGS (2)
  1. TAMSULOSIN HCL 0.4MG CAPSULE [Suspect]
     Active Substance: TAMSULOSIN HYDROCHLORIDE
     Indication: BENIGN PROSTATIC HYPERPLASIA
     Dosage: ?          QUANTITY:90 CAPSULE(S);?
     Route: 048
  2. VITAMINS [Concomitant]
     Active Substance: VITAMINS

REACTIONS (5)
  - Night sweats [None]
  - Pyrexia [None]
  - Product substitution issue [None]
  - Drug ineffective [None]
  - Urinary tract infection [None]

NARRATIVE: CASE EVENT DATE: 20190508
